FAERS Safety Report 6709231-9 (Version None)
Quarter: 2010Q2

REPORT INFORMATION
  Report Type: 
  Country: None (occurrence: None)
  Receive Date: 20100423
  Receipt Date: 20091130
  Transmission Date: 20101027
  Serious: No
  Sender: FDA-Public Use
  Company Number: ALL1-2009-03855

PATIENT
  Age: 52 Year
  Sex: Male
  Weight: 72.6 kg

DRUGS (4)
  1. VYVANSE [Suspect]
     Indication: ATTENTION DEFICIT/HYPERACTIVITY DISORDER
     Dosage: 70 MG, 1X/DAY:QD, ORAL
     Route: 048
     Dates: start: 20091002
  2. ALPRAZOLAN (ALPRAZOLAM) [Concomitant]
  3. LORTAB [Concomitant]
  4. PAXIL [Concomitant]

REACTIONS (3)
  - BLOOD PRESSURE DECREASED [None]
  - DRY MOUTH [None]
  - SOMNOLENCE [None]
